FAERS Safety Report 8560988-4 (Version None)
Quarter: 2012Q3

REPORT INFORMATION
  Report Type: 
  Country: None (occurrence: None)
  Receive Date: 20120802
  Receipt Date: 20120730
  Transmission Date: 20120928
  Serious: Yes (Hospitalization)
  Sender: FDA-Public Use
  Company Number: JP-ABBOTT-10P-087-0682403-00

PATIENT
  Sex: Male

DRUGS (10)
  1. TENOFOVIR DISOPROXIL FUMARATE [Concomitant]
     Dates: start: 20110807
  2. LAMIVUDINE [Concomitant]
  3. KALETRA [Suspect]
     Indication: HIV INFECTION
     Dosage: 4 DOSAGE FORMS DAILY
     Route: 048
     Dates: start: 20061127
  4. TRUVADA [Suspect]
     Dates: start: 20110808
  5. KALETRA [Suspect]
     Indication: HIV INFECTION
     Dosage: 6 DOSAGE FORM
     Route: 048
     Dates: start: 20050401, end: 20061126
  6. ZERIT [Suspect]
     Indication: HIV INFECTION
     Dosage: 60 MG DAILY
     Route: 048
     Dates: start: 20050401, end: 20080101
  7. LAMIVUDINE [Concomitant]
     Indication: PRODUCT USED FOR UNKNOWN INDICATION
     Route: 048
     Dates: start: 20050401, end: 20080101
  8. TENOFOVIR DISOPROXIL FUMARATE [Concomitant]
     Indication: PRODUCT USED FOR UNKNOWN INDICATION
     Dates: start: 20050401, end: 20080101
  9. ZERIT [Suspect]
     Dosage: 60 MG DAILY
     Route: 048
     Dates: start: 20090429, end: 20110807
  10. TRUVADA [Suspect]
     Indication: HIV INFECTION
     Dosage: 1 DOSAGE FORM DAILY
     Route: 048
     Dates: start: 20090429

REACTIONS (3)
  - SYPHILIS [None]
  - HYPERLIPIDAEMIA [None]
  - OESOPHAGEAL CANDIDIASIS [None]
